FAERS Safety Report 9857934 (Version 3)
Quarter: 2014Q1

REPORT INFORMATION
  Report Type: Spontaneous
  Country: US (occurrence: US)
  Receive Date: 20140131
  Receipt Date: 20140207
  Transmission Date: 20141002
  Serious: No
  Sender: FDA-Public Use
  Company Number: US-PFIZER INC-2013340944

PATIENT
  Sex: Female

DRUGS (3)
  1. PREMPRO [Suspect]
     Indication: HOT FLUSH
     Dosage: UNK
  2. PREMPRO [Suspect]
     Dosage: UNK
  3. PREMPRO [Suspect]
     Dosage: UNK

REACTIONS (3)
  - Product colour issue [Unknown]
  - Expired drug administered [Unknown]
  - Drug ineffective [Unknown]
